FAERS Safety Report 4828334-7 (Version None)
Quarter: 2005Q4

REPORT INFORMATION
  Report Type: 
  Country: None (occurrence: None)
  Receive Date: 20051115
  Receipt Date: 20051006
  Transmission Date: 20060501
  Serious: Yes (Disabling)
  Sender: FDA-Public Use
  Company Number: US-SANOFI-SYNTHELABO-A03200503241

PATIENT
  Age: 46 Year
  Sex: Female
  Weight: 66.7 kg

DRUGS (3)
  1. ELOXATIN [Suspect]
     Indication: RECTAL CANCER STAGE III
     Route: 042
     Dates: start: 20050401, end: 20050401
  2. FLUOROURACIL [Suspect]
     Indication: RECTAL CANCER STAGE III
     Dosage: 690 MG BOLUS, 1030 MG INFUSION FOR 8 CYCLES, THEN 520 MG BOLUS, 775 MG INFUSION FOR 15 CYCLES
     Route: 042
  3. LEUCOVORIN [Suspect]
     Indication: RECTAL CANCER STAGE III
     Dosage: UNK
     Route: 042

REACTIONS (10)
  - DIARRHOEA [None]
  - DIFFICULTY IN WALKING [None]
  - FALL [None]
  - HYPOAESTHESIA [None]
  - MUSCLE DISORDER [None]
  - MUSCULAR WEAKNESS [None]
  - MYALGIA [None]
  - NAUSEA [None]
  - PAIN [None]
  - PARAESTHESIA [None]
